FAERS Safety Report 7316288-3 (Version None)
Quarter: 2011Q1

REPORT INFORMATION
  Report Type: 
  Country: None (occurrence: None)
  Receive Date: 20110225
  Receipt Date: 20110217
  Transmission Date: 20110831
  Serious: Yes (Other)
  Sender: FDA-Public Use
  Company Number: BR-PFIZER INC-2011015469

PATIENT
  Age: 85 Year
  Sex: Female

DRUGS (12)
  1. GLUCOSAMINE HYDROCHLORIDE/CHONDROITIN SULFATE [Concomitant]
     Dosage: UNK
     Dates: start: 20020101
  2. HYDERGINE [Concomitant]
     Dosage: UNK
     Dates: start: 20020101
  3. CITALOR [Concomitant]
     Dosage: UNK
     Dates: start: 20011201
  4. DOMPERIDONE [Concomitant]
     Dosage: UNK
     Dates: start: 20020101
  5. TICLID [Concomitant]
     Dosage: UNK
     Dates: start: 20020101
  6. CYMBALTA [Concomitant]
     Dosage: UNK
     Dates: start: 20100101
  7. ATACAND [Concomitant]
     Dosage: UNK
     Dates: start: 20020101
  8. FRONTAL [Concomitant]
     Dosage: 0.5 MG, 1X/DAY
     Dates: start: 20010101
  9. HYGROTON [Concomitant]
     Dosage: UNK
     Dates: start: 20020101
  10. LYRICA [Suspect]
     Indication: PAIN
     Dosage: 75 MG, 1X/DAY
     Route: 048
     Dates: start: 20110113, end: 20110210
  11. PANTOPRAZOL [Concomitant]
     Dosage: UNK
     Dates: start: 20020101
  12. FRONTAL [Concomitant]
     Dosage: 0.5 MG, 3X/DAY

REACTIONS (7)
  - PARAESTHESIA [None]
  - JOINT SWELLING [None]
  - HALLUCINATION [None]
  - COORDINATION ABNORMAL [None]
  - HEARING IMPAIRED [None]
  - OEDEMA PERIPHERAL [None]
  - EMOTIONAL DISORDER [None]
